FAERS Safety Report 6136795-9 (Version None)
Quarter: 2009Q1

REPORT INFORMATION
  Report Type: 
  Country: None (occurrence: None)
  Receive Date: 20090330
  Receipt Date: 20090327
  Transmission Date: 20090719
  Serious: Yes (Hospitalization)
  Sender: FDA-Public Use
  Company Number: US-PFIZER INC-2009189289

PATIENT
  Sex: Female
  Weight: 53.061 kg

DRUGS (30)
  1. NAPROXEN [Suspect]
     Dosage: UNK
     Route: 048
     Dates: start: 20080124
  2. BLINDED *PLACEBO [Suspect]
     Dosage: UNK
     Route: 048
     Dates: start: 20080124
  3. BLINDED CELECOXIB [Suspect]
     Dosage: UNK
     Route: 048
     Dates: start: 20080124
  4. IBUPROFEN TABLETS [Suspect]
     Dosage: UNK
     Route: 048
     Dates: start: 20080124
  5. NAPROXEN [Suspect]
     Dosage: UNK
     Route: 048
     Dates: start: 20080124
  6. NEXIUM [Concomitant]
     Dosage: 20 MG, 1X/DAY
     Dates: start: 20080124
  7. COZAAR [Concomitant]
     Dosage: UNK
     Dates: start: 20060701
  8. CRESTOR [Concomitant]
     Dosage: UNK
     Dates: start: 20060720
  9. MONTELUKAST SODIUM [Concomitant]
     Dosage: UNK
     Dates: start: 20060221
  10. VITAMIN E [Concomitant]
     Dosage: UNK
     Dates: start: 20040101
  11. ZOMIG [Concomitant]
     Dosage: UNK
     Dates: start: 20040101
  12. IMITREX [Concomitant]
     Dosage: UNK
     Dates: start: 20040101
  13. COMBIVENT [Concomitant]
     Dosage: UNK
     Dates: start: 20040101
  14. VERAPAMIL [Concomitant]
     Dosage: UNK
     Dates: start: 20061017
  15. FIORICET [Concomitant]
     Dosage: UNK
     Dates: start: 20030101
  16. FOLIC ACID [Concomitant]
     Dosage: UNK
     Dates: start: 20040101
  17. GENERAL NUTRIENTS [Concomitant]
     Dosage: UNK
     Dates: start: 20040101
  18. OMEGA 3/VITAMIN E [Concomitant]
     Dosage: UNK
     Dates: start: 20040101
  19. TYLENOL (CAPLET) [Concomitant]
     Dosage: UNK
     Dates: start: 19900101
  20. AMBIEN [Concomitant]
     Dosage: UNK
     Dates: start: 20061101
  21. SODIUM CHLORIDE [Concomitant]
     Dosage: UNK
     Dates: start: 20070115
  22. SPORANOX [Concomitant]
     Dosage: UNK
     Dates: start: 20061201
  23. CHONDROITIN/GLUCOSAMINE [Concomitant]
     Dosage: UNK
     Dates: start: 20061101
  24. HERBAL NOS/MINERALS NOS [Concomitant]
     Dosage: UNK
     Dates: start: 20070205
  25. KEFLEX [Concomitant]
     Dosage: UNK
     Dates: start: 20070108
  26. MIRAPEX [Concomitant]
     Dosage: UNK
     Dates: start: 20070625
  27. ORLISTAT [Concomitant]
     Dosage: UNK
     Dates: start: 20070621
  28. ADVAIR DISKUS 100/50 [Concomitant]
     Dosage: UNK
     Dates: start: 20071002
  29. TYLENOL [Concomitant]
     Dosage: UNK
     Dates: start: 20050101
  30. ULTRAM ER [Concomitant]
     Dosage: UNK
     Dates: start: 20070104

REACTIONS (2)
  - MIGRAINE [None]
  - PNEUMONITIS [None]
